FAERS Safety Report 15822531 (Version 1)
Quarter: 2019Q1

REPORT INFORMATION
  Report Type: Spontaneous
  Country: US (occurrence: US)
  Receive Date: 20190114
  Receipt Date: 20190114
  Transmission Date: 20190417
  Serious: Yes (Life-Threatening, Hospitalization, Disabling, Other)
  Sender: FDA-Public Use
  Company Number: None

PATIENT
  Age: 16 Year
  Sex: Male
  Weight: 63 kg

DRUGS (6)
  1. DESIGNS FOR HEALTH ACNUTROL [Concomitant]
  2. CALCIUM/MAGNESIUM [Concomitant]
     Active Substance: CALCIUM\MAGNESIUM
  3. ORACEA [Suspect]
     Active Substance: DOXYCYCLINE
     Indication: ACNE
     Dosage: ?          QUANTITY:1 CAPSULE(S);?
     Route: 048
     Dates: start: 20180814, end: 20181229
  4. NATURA INFLAMMAWAY [Concomitant]
  5. FISH OIL [Concomitant]
     Active Substance: FISH OIL
  6. VIT. D, FOLIC ACID, VIT. B - COMPLEX [Concomitant]
     Active Substance: FOLIC ACID\VITAMINS

REACTIONS (10)
  - Purtscher retinopathy [None]
  - Abnormal behaviour [None]
  - Spinal fracture [None]
  - Suicide attempt [None]
  - Rib fracture [None]
  - Clavicle fracture [None]
  - Depression [None]
  - Road traffic accident [None]
  - Ankle fracture [None]
  - Chest injury [None]

NARRATIVE: CASE EVENT DATE: 20181212
